FAERS Safety Report 5409391-6 (Version None)
Quarter: 2007Q3

REPORT INFORMATION
  Report Type: 
  Country: None (occurrence: None)
  Receive Date: 20070808
  Receipt Date: 20070808
  Transmission Date: 20080115
  Serious: Yes (Other)
  Sender: FDA-Public Use
  Company Number: None

PATIENT
  Age: 32 Year
  Sex: Female
  Weight: 120.6568 kg

DRUGS (1)
  1. CHANTIX [Suspect]
     Indication: SMOKING CESSATION THERAPY
     Dosage: 1M 2X DAILY PO
     Route: 048
     Dates: start: 20070615, end: 20070622

REACTIONS (2)
  - DRUG WITHDRAWAL SYNDROME [None]
  - MORBID THOUGHTS [None]
